FAERS Safety Report 5099162-5 (Version None)
Quarter: 2006Q3

REPORT INFORMATION
  Report Type: 
  Country: None (occurrence: None)
  Receive Date: 20060728
  Receipt Date: 20060404
  Transmission Date: 20061208
  Serious: No
  Sender: FDA-Public Use
  Company Number: COT_0257_2005

PATIENT
  Age: 38 Year
  Sex: Female
  Weight: 62.1428 kg

DRUGS (15)
  1. VENTAVIS [Suspect]
     Indication: PULMONARY HYPERTENSION
     Dosage: 2.5 MCG ONCE IH
     Dates: start: 20051103, end: 20051103
  2. VENTAVIS [Suspect]
     Indication: PULMONARY HYPERTENSION
     Dosage: 5 MCG 5 TO 6X/DAY IH
     Dates: start: 20051103
  3. VENTAVIS [Suspect]
     Indication: PULMONARY HYPERTENSION
     Dosage: 5 MCG 2TO6X/DAY IH
     Dates: end: 20060301
  4. TRACLEER [Concomitant]
  5. COUMADIN [Concomitant]
  6. TORSEMIDE [Concomitant]
  7. MAG OX [Concomitant]
  8. PRILOSEC [Concomitant]
  9. DIGOXIN [Concomitant]
  10. PREDNISONE TAB [Concomitant]
  11. ADVAIR DISKUS 100/50 [Concomitant]
  12. ATROVENT [Concomitant]
  13. AMBIEN [Concomitant]
  14. K-DUR 10 [Concomitant]
  15. OXYGEN [Concomitant]

REACTIONS (6)
  - CHEST DISCOMFORT [None]
  - DIZZINESS [None]
  - DYSPNOEA [None]
  - HEADACHE [None]
  - HEART RATE INCREASED [None]
  - THROAT IRRITATION [None]
